FAERS Safety Report 13334955 (Version 2)
Quarter: 2017Q2

REPORT INFORMATION
  Report Type: Spontaneous
  Country: PL (occurrence: PL)
  Receive Date: 20170314
  Receipt Date: 20170425
  Transmission Date: 20170830
  Serious: Yes (Life-Threatening, Hospitalization, Disabling, Other)
  Sender: FDA-Public Use
  Company Number: PL-INCYTE CORPORATION-2017IN001824

PATIENT
  Age: 59 Year
  Sex: Female
  Weight: 70 kg

DRUGS (6)
  1. MILURIT [Concomitant]
     Active Substance: ALLOPURINOL
     Indication: HYPERURICAEMIA
     Dosage: 1 DF, UNK (100 MG)
     Route: 048
     Dates: start: 2015
  2. TRIFAS [Concomitant]
     Indication: HYPERTENSION
     Dosage: 2 DF, UNK (5 MG)
     Route: 048
     Dates: start: 20170214
  3. JAKAVI [Suspect]
     Active Substance: RUXOLITINIB
     Indication: MYELOFIBROSIS
     Dosage: 20 MG, BID (2 X 2M MG)
     Route: 048
     Dates: start: 20170131
  4. CONTIX [Concomitant]
     Indication: PEPTIC ULCER
     Dosage: 1 DF, UNK (20 MG)
     Route: 048
     Dates: start: 2016
  5. TRIFAS [Concomitant]
     Indication: OEDEMA
  6. ALORTIA [Concomitant]
     Indication: HYPERTENSION
     Dosage: 1 DF, UNK (50/2.5 MG)
     Route: 048
     Dates: start: 2016, end: 20170228

REACTIONS (5)
  - Atrial fibrillation [Recovering/Resolving]
  - Hypertrophic cardiomyopathy [Unknown]
  - Cardiac failure [Recovering/Resolving]
  - Herpes zoster [Recovered/Resolved]
  - Tricuspid valve incompetence [Not Recovered/Not Resolved]

NARRATIVE: CASE EVENT DATE: 20170223
